FAERS Safety Report 19958006 (Version 1)
Quarter: 2021Q4

REPORT INFORMATION
  Report Type: Spontaneous
  Country: US (occurrence: US)
  Receive Date: 20211015
  Receipt Date: 20211015
  Transmission Date: 20220303
  Serious: Yes (Other)
  Sender: FDA-Public Use
  Company Number: US-SAGE-2021SAGE000093

PATIENT
  Sex: Female

DRUGS (1)
  1. ZULRESSO [Suspect]
     Active Substance: BREXANOLONE
     Indication: Perinatal depression
     Dosage: UNK
     Route: 042
     Dates: start: 2020

REACTIONS (3)
  - Suicidal ideation [Unknown]
  - Homicidal ideation [Unknown]
  - Psychotic disorder [Unknown]

NARRATIVE: CASE EVENT DATE: 20200101
